FAERS Safety Report 25594688 (Version 1)
Quarter: 2025Q3

REPORT INFORMATION
  Report Type: Spontaneous
  Country: GB (occurrence: GB)
  Receive Date: 20250723
  Receipt Date: 20250723
  Transmission Date: 20251020
  Serious: Yes (Hospitalization, Other)
  Sender: AUROBINDO
  Company Number: GB-MHRA-MED-202507101327498580-CFTGY

PATIENT
  Age: 64 Year
  Sex: Female

DRUGS (1)
  1. NITROFURANTOIN [Suspect]
     Active Substance: NITROFURANTOIN
     Indication: Adverse drug reaction
     Dosage: 50 MILLIGRAM, ONCE A DAY
     Route: 065
     Dates: start: 20231101, end: 20250701

REACTIONS (1)
  - Hepatotoxicity [Recovering/Resolving]
